FAERS Safety Report 13296809 (Version 1)
Quarter: 2017Q1

REPORT INFORMATION
  Report Type: Spontaneous
  Country: CA (occurrence: CA)
  Receive Date: 20170306
  Receipt Date: 20170306
  Transmission Date: 20170428
  Serious: Yes (Other)
  Sender: FDA-Public Use
  Company Number: CA-TEVA-746441ACC

PATIENT
  Sex: Female

DRUGS (2)
  1. ESTRACE [Concomitant]
     Active Substance: ESTRADIOL
  2. SPIRONOLACTONE. [Suspect]
     Active Substance: SPIRONOLACTONE
     Dosage: 200 MILLIGRAM DAILY;

REACTIONS (3)
  - Suicidal ideation [Unknown]
  - Decreased appetite [Unknown]
  - Depression [Unknown]
